FAERS Safety Report 9025501 (Version 1)
Quarter: 2013Q1

REPORT INFORMATION
  Report Type: Spontaneous
  Country: VE (occurrence: VE)
  Receive Date: 20130122
  Receipt Date: 20130122
  Transmission Date: 20140127
  Serious: Yes (Hospitalization)
  Sender: FDA-Public Use
  Company Number: VE-ROCHE-1182054

PATIENT
  Age: 51 None
  Sex: Female

DRUGS (2)
  1. XOLAIR [Suspect]
     Indication: ASTHMA
     Route: 058
     Dates: start: 20110425, end: 201110
  2. ALOVENT [Concomitant]
     Indication: ASTHMA

REACTIONS (2)
  - Asthma [Not Recovered/Not Resolved]
  - Dermatitis allergic [Not Recovered/Not Resolved]
